FAERS Safety Report 8402705-4 (Version None)
Quarter: 2012Q2

REPORT INFORMATION
  Report Type: 
  Country: None (occurrence: None)
  Receive Date: 20120601
  Receipt Date: 20120518
  Transmission Date: 20120825
  Serious: Yes (Death, Other)
  Sender: FDA-Public Use
  Company Number: US-CELGENEUS-163-21880-12053679

PATIENT
  Sex: Female

DRUGS (1)
  1. REVLIMID [Suspect]
     Dosage: 5 MILLIGRAM
     Route: 048
     Dates: start: 20100301, end: 20120101

REACTIONS (7)
  - MYELODYSPLASTIC SYNDROME TRANSFORMATION [None]
  - RASH MACULAR [None]
  - FATIGUE [None]
  - SPINAL COMPRESSION FRACTURE [None]
  - CYSTITIS [None]
  - LEUKAEMIA [None]
  - PLATELET COUNT DECREASED [None]
